FAERS Safety Report 9680969 (Version 1)
Quarter: 2013Q4

REPORT INFORMATION
  Report Type: Spontaneous
  Country: US (occurrence: None)
  Receive Date: 20131108
  Receipt Date: 20131108
  Transmission Date: 20140711
  Serious: Yes (Hospitalization)
  Sender: FDA-Public Use
  Company Number: None

PATIENT
  Age: 63 Year
  Sex: Female
  Weight: 62 kg

DRUGS (16)
  1. LITHIUM [Suspect]
     Indication: SUICIDE ATTEMPT
     Route: 048
     Dates: start: 20121217, end: 20131105
  2. LITHIUM [Suspect]
     Indication: PSYCHOTIC DISORDER
     Route: 048
     Dates: start: 20121217, end: 20131105
  3. ALLOPURINOL [Concomitant]
  4. ASPIRIN [Concomitant]
  5. COREG [Concomitant]
  6. CLOPIDOGREL [Concomitant]
  7. DOCUSATE [Concomitant]
  8. FUROSEMIDE [Concomitant]
  9. IMDUR [Concomitant]
  10. LORAZEPAM [Concomitant]
  11. ZYPREXA [Concomitant]
  12. POTASSIUM [Concomitant]
  13. RAANITIDINE [Concomitant]
  14. SUCRALFATE [Concomitant]
  15. THERA M PLUS [Concomitant]
  16. TRAZODONE [Concomitant]

REACTIONS (5)
  - Atrioventricular block first degree [None]
  - Heart rate decreased [None]
  - Antipsychotic drug level increased [None]
  - Atrioventricular block complete [None]
  - Dialysis [None]
